FAERS Safety Report 9719134 (Version 2)
Quarter: 2013Q4

REPORT INFORMATION
  Report Type: Spontaneous
  Country: US (occurrence: US)
  Receive Date: 20131127
  Receipt Date: 20131128
  Transmission Date: 20140711
  Serious: Yes (Other)
  Sender: FDA-Public Use
  Company Number: CHPA2013US017467

PATIENT
  Age: 65 Year
  Sex: Female

DRUGS (2)
  1. VOLTAREN GEL [Suspect]
     Indication: ARTHRITIS
     Dosage: 2 GRAMS( HANDS) AND 4 GRAMS (KNEES, ANKLES AND FEET), 2-4 TIMES A DAY
     Route: 061
  2. VOLTAREN GEL [Suspect]
     Dosage: 2 GRAMS( HANDS) AND 4 GRAMS (KNEES, ANKLES AND FEET), 2-4 TIMES A DAY
     Route: 061

REACTIONS (5)
  - Blood cholesterol increased [Recovering/Resolving]
  - Fall [Recovered/Resolved]
  - Joint injury [Recovered/Resolved]
  - Device dislocation [Recovered/Resolved]
  - Underdose [Unknown]
